FAERS Safety Report 21901538 (Version 2)
Quarter: 2023Q1

REPORT INFORMATION
  Report Type: Report from Study
  Country: CA (occurrence: CA)
  Receive Date: 20230123
  Receipt Date: 20230321
  Transmission Date: 20230418
  Serious: Yes (Hospitalization, Other)
  Sender: FDA-Public Use
  Company Number: CA-AMGEN-CANSL2022180056

PATIENT
  Age: 52 Year
  Sex: Male

DRUGS (7)
  1. AVSOLA [Suspect]
     Active Substance: INFLIXIMAB-AXXQ
     Indication: Crohn^s disease
     Dosage: 600 MILLIGRAM, Q8WK
     Route: 065
     Dates: start: 20220117
  2. AVSOLA [Suspect]
     Active Substance: INFLIXIMAB-AXXQ
     Dosage: 10 MILLIGRAM/KILOGRAM, Q8WK
     Route: 065
     Dates: start: 20220225
  3. AVSOLA [Suspect]
     Active Substance: INFLIXIMAB-AXXQ
     Dosage: 10 MILLIGRAM/KILOGRAM, Q4WK
     Route: 065
  4. AVSOLA [Suspect]
     Active Substance: INFLIXIMAB-AXXQ
     Dosage: 10 MILLIGRAM/KILOGRAM, Q4WK
     Route: 065
     Dates: start: 20220225
  5. CORTISONE [Concomitant]
     Active Substance: CORTISONE
     Dosage: UNK
  6. CORTISONE [Concomitant]
     Active Substance: CORTISONE
     Dosage: 4CO PO PER DAY
     Route: 048
     Dates: start: 20230108
  7. CORTISONE [Concomitant]
     Active Substance: CORTISONE
     Dosage: 2 CO PER DAY
     Route: 048
     Dates: start: 20230108

REACTIONS (11)
  - Back pain [Unknown]
  - Crohn^s disease [Unknown]
  - Musculoskeletal chest pain [Unknown]
  - Intestinal obstruction [Unknown]
  - Cholelithiasis [Unknown]
  - Headache [Unknown]
  - White blood cell count increased [Unknown]
  - Off label use [Unknown]
  - Fatigue [Unknown]
  - Abdominal pain [Unknown]
  - Vomiting [Unknown]

NARRATIVE: CASE EVENT DATE: 20221201
